FAERS Safety Report 8619380-6 (Version None)
Quarter: 2012Q3

REPORT INFORMATION
  Report Type: 
  Country: None (occurrence: None)
  Receive Date: 20120824
  Receipt Date: 20120816
  Transmission Date: 20120928
  Serious: Yes (Other)
  Sender: FDA-Public Use
  Company Number: US-US-EMD SERONO, INC.-7053984

PATIENT
  Sex: Female
  Weight: 52 kg

DRUGS (3)
  1. OXYCODONE HCL [Concomitant]
     Indication: PRODUCT USED FOR UNKNOWN INDICATION
  2. REBIF [Suspect]
     Indication: MULTIPLE SCLEROSIS
     Route: 058
     Dates: start: 20100210, end: 20110101
  3. REBIF [Suspect]
     Route: 058
     Dates: start: 20110101

REACTIONS (7)
  - AUTOIMMUNE THYROIDITIS [None]
  - VISUAL ACUITY REDUCED [None]
  - CENTRAL NERVOUS SYSTEM LESION [None]
  - INSOMNIA [None]
  - AMENORRHOEA [None]
  - MYALGIA [None]
  - COGNITIVE DISORDER [None]
